FAERS Safety Report 16881726 (Version 3)
Quarter: 2020Q1

REPORT INFORMATION
  Report Type: Spontaneous
  Country: AR (occurrence: AR)
  Receive Date: 20191003
  Receipt Date: 20200205
  Transmission Date: 20200409
  Serious: Yes (Hospitalization, Other)
  Sender: FDA-Public Use
  Company Number: AR-ASTELLAS-2019US038658

PATIENT
  Age: 67 Year
  Sex: Male

DRUGS (1)
  1. TACROLIMUS. [Suspect]
     Active Substance: TACROLIMUS
     Indication: PRODUCT USED FOR UNKNOWN INDICATION
     Dosage: 10 MG, ONCE DAILY (2 CAPSULES EVERY MORNING)
     Route: 048
     Dates: start: 201907, end: 20190924

REACTIONS (2)
  - Immunosuppressant drug level increased [Unknown]
  - Seizure [Unknown]

NARRATIVE: CASE EVENT DATE: 20190924
